FAERS Safety Report 13444870 (Version 3)
Quarter: 2017Q3

REPORT INFORMATION
  Report Type: Spontaneous
  Country: GB (occurrence: GB)
  Receive Date: 20170414
  Receipt Date: 20170721
  Transmission Date: 20171127
  Serious: Yes (Hospitalization)
  Sender: FDA-Public Use
  Company Number: GB-UCBSA-2017013934

PATIENT
  Age: 46 Year
  Sex: Female

DRUGS (8)
  1. EPILAM [Concomitant]
     Indication: EPILEPSY
  2. LANSOPRAZOLE. [Concomitant]
     Active Substance: LANSOPRAZOLE
     Indication: PRODUCT USED FOR UNKNOWN INDICATION
  3. KEPPRA [Suspect]
     Active Substance: LEVETIRACETAM
     Dosage: STRENGTH: 100 MG/ ML, 1500 MG
     Route: 042
     Dates: start: 20170405, end: 20170405
  4. KEPPRA [Suspect]
     Active Substance: LEVETIRACETAM
     Dosage: UNK
  5. CLONAZEPAM. [Concomitant]
     Active Substance: CLONAZEPAM
     Indication: EPILEPSY
  6. KEPPRA [Suspect]
     Active Substance: LEVETIRACETAM
     Indication: EPILEPSY
     Dosage: UNK UNK, 2X/DAY (BID)
  7. SODIUM VALPROATE [Concomitant]
     Active Substance: VALPROATE SODIUM
     Indication: PRODUCT USED FOR UNKNOWN INDICATION
     Dosage: 1300 MG, UNK
     Route: 042
  8. SANDO K [Concomitant]
     Indication: BLOOD POTASSIUM

REACTIONS (2)
  - Hospitalisation [Unknown]
  - Off label use [Unknown]

NARRATIVE: CASE EVENT DATE: 20170405
